FAERS Safety Report 8325000-0 (Version None)
Quarter: 2012Q2

REPORT INFORMATION
  Report Type: 
  Country: None (occurrence: None)
  Receive Date: 20120501
  Receipt Date: 20120427
  Transmission Date: 20120825
  Serious: Yes (Death)
  Sender: FDA-Public Use
  Company Number: US-B.I. PHARMACEUTICALS,INC./RIDGEFIELD-2012-BP-06017BP

PATIENT
  Age: 71 Year
  Sex: Male

DRUGS (4)
  1. STATINS [Concomitant]
  2. AMIODARONE HCL [Concomitant]
     Dosage: 400 MG
  3. PRADAXA [Suspect]
     Indication: ATRIAL FIBRILLATION
     Dosage: 300 MG
  4. ASPIRIN [Concomitant]
     Dosage: 80 MG

REACTIONS (3)
  - ABDOMINAL PAIN UPPER [None]
  - DIZZINESS POSTURAL [None]
  - AORTIC DISSECTION RUPTURE [None]
